FAERS Safety Report 6735244-7 (Version None)
Quarter: 2010Q2

REPORT INFORMATION
  Report Type: 
  Country: None (occurrence: None)
  Receive Date: 20100517
  Receipt Date: 20090406
  Transmission Date: 20101027
  Serious: Yes (Other)
  Sender: FDA-Public Use
  Company Number: 2009BH005431

PATIENT
  Sex: Female

DRUGS (4)
  1. CYTOXAN [Suspect]
     Indication: BREAST CANCER
     Dates: start: 20090101
  2. TAXOTERE [Suspect]
     Indication: BREAST CANCER
     Dosage: ;IV
     Route: 042
     Dates: start: 20090101
  3. GROWTH FACTOR [Suspect]
     Indication: DRUG USE FOR UNKNOWN INDICATION
     Dates: start: 20090101
  4. PEGFILGRASTIM [Suspect]
     Indication: DRUG USE FOR UNKNOWN INDICATION
     Dates: start: 20090101

REACTIONS (2)
  - DIARRHOEA [None]
  - WHITE BLOOD CELL COUNT DECREASED [None]
